FAERS Safety Report 5386033-X (Version None)
Quarter: 2007Q3

REPORT INFORMATION
  Report Type: 
  Country: None (occurrence: None)
  Receive Date: 20070710
  Receipt Date: 20070625
  Transmission Date: 20080115
  Serious: Yes (Life-Threatening, Hospitalization)
  Sender: FDA-Public Use
  Company Number: US020437

PATIENT
  Age: 59 Year
  Sex: Female

DRUGS (1)
  1. ACTIQ [Suspect]
     Dosage: 200 UG UNK; BUCCAL
     Route: 002

REACTIONS (11)
  - AGITATION [None]
  - COMA [None]
  - INCORRECT DOSE ADMINISTERED [None]
  - IRRITABILITY [None]
  - LETHARGY [None]
  - PAIN [None]
  - RESPIRATORY ARREST [None]
  - RESPIRATORY DEPRESSION [None]
  - SOMNOLENCE [None]
  - SUICIDE ATTEMPT [None]
  - SYNCOPE [None]
